FAERS Safety Report 8088772-9 (Version None)
Quarter: 2012Q1

REPORT INFORMATION
  Report Type: 
  Country: None (occurrence: None)
  Receive Date: 20120128
  Receipt Date: 20110608
  Transmission Date: 20120608
  Serious: No
  Sender: FDA-Public Use
  Company Number: US-ABBOTT-11P-163-0731005-00

PATIENT
  Age: 52 Year
  Sex: Male

DRUGS (1)
  1. HUMIRA [Suspect]
     Indication: RHEUMATOID ARTHRITIS
     Dates: start: 20110515

REACTIONS (10)
  - ANXIETY [None]
  - AKATHISIA [None]
  - INSOMNIA [None]
  - ARTHRALGIA [None]
  - RASH PRURITIC [None]
  - RASH PUSTULAR [None]
  - MYALGIA [None]
  - RASH ERYTHEMATOUS [None]
  - NODULE [None]
  - PAIN [None]
